FAERS Safety Report 6809718-4 (Version None)
Quarter: 2010Q2

REPORT INFORMATION
  Report Type: 
  Country: None (occurrence: None)
  Receive Date: 20100630
  Receipt Date: 20100628
  Transmission Date: 20101027
  Serious: Yes (Death)
  Sender: FDA-Public Use
  Company Number: JP-SANOFI-AVENTIS-2010SA028827

PATIENT
  Age: 74 Year
  Sex: Male

DRUGS (2)
  1. TAXOTERE [Suspect]
     Indication: LUNG ADENOCARCINOMA
     Route: 042
     Dates: start: 20100423, end: 20100423
  2. INSULIN [Concomitant]
     Indication: DIABETES MELLITUS

REACTIONS (3)
  - FEBRILE NEUTROPENIA [None]
  - PNEUMONIA [None]
  - RENAL FAILURE ACUTE [None]
